FAERS Safety Report 6124977-1 (Version None)
Quarter: 2009Q1

REPORT INFORMATION
  Report Type: 
  Country: None (occurrence: None)
  Receive Date: 20090319
  Receipt Date: 20090312
  Transmission Date: 20090719
  Serious: Yes (Other)
  Sender: FDA-Public Use
  Company Number: FR-GILEAD-2009-0020860

PATIENT
  Age: 51 Year
  Sex: Female

DRUGS (7)
  1. VIREAD [Suspect]
     Indication: HIV INFECTION
  2. RITONAVIR [Concomitant]
     Indication: HIV INFECTION
  3. LAMIVUDINE [Concomitant]
     Indication: HIV INFECTION
  4. ATAZANAVIR SULFATE [Concomitant]
     Indication: HIV INFECTION
  5. KETOPROPHEN [Concomitant]
     Indication: PAIN
  6. DICLOFENAC [Concomitant]
     Indication: PAIN
  7. MORPHINE SULFATE [Concomitant]
     Indication: PAIN

REACTIONS (4)
  - FRACTURE [None]
  - OSTEOMALACIA [None]
  - RENAL FAILURE [None]
  - RENAL TUBULAR DISORDER [None]
